FAERS Safety Report 7361587-2 (Version None)
Quarter: 2011Q1

REPORT INFORMATION
  Report Type: 
  Country: None (occurrence: None)
  Receive Date: 20110318
  Receipt Date: 20110311
  Transmission Date: 20110831
  Serious: Yes (Other)
  Sender: FDA-Public Use
  Company Number: US-PFIZER INC-2006031816

PATIENT
  Sex: Male

DRUGS (6)
  1. NEURONTIN [Suspect]
     Dosage: 300 MG, 3X/DAY
     Dates: start: 20020531
  2. NEURONTIN [Suspect]
     Indication: ILL-DEFINED DISORDER
     Dosage: 300 MG, UNK
     Dates: start: 20000711
  3. NEURONTIN [Suspect]
     Dosage: 600 MG, 2X/DAY
     Dates: start: 20030204
  4. NEURONTIN [Suspect]
     Dosage: 300 MG, 4X/DAY
     Dates: start: 20020110
  5. NEURONTIN [Suspect]
     Dosage: 600 MG, UNK
     Dates: start: 20020604
  6. NEURONTIN [Suspect]
     Dosage: 300 MG, 2X/DAY
     Dates: start: 20021203

REACTIONS (5)
  - SUICIDAL IDEATION [None]
  - DEPRESSION [None]
  - PANIC ATTACK [None]
  - BIPOLAR DISORDER [None]
  - AGGRESSION [None]
